FAERS Safety Report 24911638 (Version 2)
Quarter: 2025Q1

REPORT INFORMATION
  Report Type: Spontaneous
  Country: DE (occurrence: DE)
  Receive Date: 20250131
  Receipt Date: 20250226
  Transmission Date: 20250408
  Serious: Yes (Other)
  Sender: ASTELLAS
  Company Number: DE-ASTELLAS-2025-AER-005934

PATIENT
  Age: 55 Year
  Sex: Female

DRUGS (4)
  1. VEOZAH [Suspect]
     Active Substance: FEZOLINETANT
     Indication: Menopausal symptoms
     Dosage: 1X (ONCE) DAILY 45 MG ORALLY
     Route: 048
     Dates: start: 20240910, end: 20241010
  2. LEVOTHYROXINE [Concomitant]
     Active Substance: LEVOTHYROXINE
     Indication: Hypothyroidism
     Route: 065
  3. CANDESARTAN [Concomitant]
     Active Substance: CANDESARTAN
     Indication: Hypertension
     Route: 065
  4. BISOPROLOL [Concomitant]
     Active Substance: BISOPROLOL
     Indication: Hypertension
     Route: 065

REACTIONS (2)
  - Pulmonary embolism [Recovered/Resolved]
  - Venous thrombosis limb [Recovered/Resolved]

NARRATIVE: CASE EVENT DATE: 20241010
